FAERS Safety Report 9680174 (Version 3)
Quarter: 2014Q2

REPORT INFORMATION
  Report Type: Report from Study
  Country: US (occurrence: US)
  Receive Date: 20131111
  Receipt Date: 20140627
  Transmission Date: 20141212
  Serious: Yes (Hospitalization, Other)
  Sender: FDA-Public Use
  Company Number: US-BIOGENIDEC-2013BI106293

PATIENT
  Age: 52 Year
  Sex: Female
  Weight: 45 kg

DRUGS (2)
  1. TYSABRI [Suspect]
     Indication: MULTIPLE SCLEROSIS
     Route: 042
     Dates: start: 20061013, end: 20091204
  2. TYSABRI [Suspect]
     Indication: MULTIPLE SCLEROSIS
     Route: 042
     Dates: start: 20110729, end: 20130311

REACTIONS (8)
  - Pulmonary fibrosis [Unknown]
  - Post procedural complication [Unknown]
  - Subcutaneous emphysema [Unknown]
  - Pneumothorax [Unknown]
  - Pleural effusion [Unknown]
  - Gastrooesophageal reflux disease [Unknown]
  - Defect conduction intraventricular [Not Recovered/Not Resolved]
  - Arteriosclerosis coronary artery [Not Recovered/Not Resolved]
